FAERS Safety Report 6134939-6 (Version None)
Quarter: 2009Q1

REPORT INFORMATION
  Report Type: 
  Country: None (occurrence: None)
  Receive Date: 20090325
  Receipt Date: 20090318
  Transmission Date: 20090719
  Serious: Yes (Congenital Anomaly)
  Sender: FDA-Public Use
  Company Number: ADE2008-0336

PATIENT
  Age: 39 Week
  Sex: Male
  Weight: 3.34 kg

DRUGS (1)
  1. ZIDOVUDINE [Suspect]
     Indication: HIV INFECTION
     Dosage: 500MG-TRANSPLACENT
     Route: 064
     Dates: start: 20080805, end: 20081015

REACTIONS (3)
  - CAESAREAN SECTION [None]
  - MATERNAL DRUGS AFFECTING FOETUS [None]
  - VENTRICULAR HYPOPLASIA [None]
